FAERS Safety Report 23023927 (Version 2)
Quarter: 2024Q1

REPORT INFORMATION
  Report Type: Spontaneous
  Country: FR (occurrence: FR)
  Receive Date: 20231003
  Receipt Date: 20240122
  Transmission Date: 20240410
  Serious: Yes (Other)
  Sender: FDA-Public Use
  Company Number: FR-002147023-NVSC2023FR211253

PATIENT
  Age: 75 Year
  Sex: Female

DRUGS (1)
  1. AZOPT [Suspect]
     Active Substance: BRINZOLAMIDE
     Indication: Glaucoma
     Dosage: 2 DRP, QD (1 DRP, BID (1 DROP IN EACH EYE) (MORNING AND EVENING))
     Route: 047

REACTIONS (1)
  - Choking [Unknown]
